FAERS Safety Report 22334000 (Version 1)
Quarter: 2023Q2

REPORT INFORMATION
  Report Type: Spontaneous
  Country: US (occurrence: US)
  Receive Date: 20230517
  Receipt Date: 20230517
  Transmission Date: 20230722
  Serious: No
  Sender: FDA-Public Use
  Company Number: US-BRISTOL-MYERS SQUIBB COMPANY-2023-068468

PATIENT
  Age: 72 Year
  Sex: Female
  Weight: 86.64 kg

DRUGS (1)
  1. REVLIMID [Suspect]
     Active Substance: LENALIDOMIDE
     Indication: Plasma cell myeloma
     Dosage: TAKE 1 CAPSULE ON MONDAY AND FRIDAY FOR 3 WEEKS ON, THEN 7 DAYS OFF.
     Route: 048
     Dates: start: 20200226

REACTIONS (3)
  - Paranasal sinus hypersecretion [Recovering/Resolving]
  - Nasopharyngitis [Recovering/Resolving]
  - Off label use [Unknown]
